FAERS Safety Report 7297344-5 (Version None)
Quarter: 2011Q1

REPORT INFORMATION
  Report Type: 
  Country: None (occurrence: None)
  Receive Date: 20110207
  Receipt Date: 20110123
  Transmission Date: 20110831
  Serious: Yes (Other)
  Sender: FDA-Public Use
  Company Number: 2011SP003880

PATIENT
  Sex: Male

DRUGS (1)
  1. INTERFERON [Suspect]
     Indication: HEPATITIS

REACTIONS (10)
  - DRUG HYPERSENSITIVITY [None]
  - HEPATIC NEOPLASM MALIGNANT [None]
  - INTRACRANIAL HYPOTENSION [None]
  - PITUITARY TUMOUR [None]
  - HEADACHE [None]
  - POST PROCEDURAL COMPLICATION [None]
  - TYPE 2 DIABETES MELLITUS [None]
  - INFECTION [None]
  - EPISTAXIS [None]
  - HYPERTENSION [None]
